FAERS Safety Report 11512620 (Version 13)
Quarter: 2019Q2

REPORT INFORMATION
  Report Type: Report from Study
  Country: DE (occurrence: DE)
  Receive Date: 20150916
  Receipt Date: 20190429
  Transmission Date: 20190711
  Serious: Yes (Hospitalization, Other)
  Sender: FDA-Public Use
  Company Number: DE-ROCHE-1587446

PATIENT
  Age: 77 Year
  Sex: Female
  Weight: 80 kg

DRUGS (17)
  1. L-THYROXIN [LEVOTHYROXINE] [Concomitant]
     Active Substance: LEVOTHYROXINE SODIUM
     Route: 065
  2. BISOPROLOL [Concomitant]
     Active Substance: BISOPROLOL
     Route: 065
  3. NOVAMINSULFON [Concomitant]
     Active Substance: METAMIZOLE
     Dosage: AS REQUIRED
     Route: 065
  4. METHOTREXATE. [Concomitant]
     Active Substance: METHOTREXATE
     Route: 058
     Dates: start: 2002
  5. CORTISONE [Concomitant]
     Active Substance: CORTISONE\HYDROCORTISONE
     Dosage: AS REQUIRED
     Route: 065
  6. ROACTEMRA [Suspect]
     Active Substance: TOCILIZUMAB
     Indication: RHEUMATOID ARTHRITIS
     Dosage: ON THURSDAYS
     Route: 058
     Dates: start: 20150513, end: 20180927
  7. MARCUMAR [Concomitant]
     Active Substance: PHENPROCOUMON
     Route: 065
  8. MARCUMAR [Concomitant]
     Active Substance: PHENPROCOUMON
     Route: 065
  9. VIGANTOLETTEN [Concomitant]
     Active Substance: CHOLECALCIFEROL
  10. L-THYROXIN [LEVOTHYROXINE] [Concomitant]
     Active Substance: LEVOTHYROXINE SODIUM
     Dosage: TREATMENT AFTER THYROID SURGERY
     Route: 065
  11. VALSACOR [Concomitant]
     Active Substance: VALSARTAN
     Route: 065
  12. METHOTREXATE. [Concomitant]
     Active Substance: METHOTREXATE
     Indication: RHEUMATOID ARTHRITIS
     Dosage: ON TUESDAYS
     Route: 058
     Dates: start: 2002
  13. KALINOR [CITRIC ACID;POTASSIUM BICARBONATE;POTASSIUM CITRATE] [Concomitant]
     Active Substance: CITRIC ACID MONOHYDRATE\POTASSIUM BICARBONATE\POTASSIUM CITRATE
  14. TORASEMID [Concomitant]
     Active Substance: TORSEMIDE
     Indication: HYPERTENSION
     Route: 065
  15. MARCUMAR [Concomitant]
     Active Substance: PHENPROCOUMON
     Route: 065
  16. TORASEMID [Concomitant]
     Active Substance: TORSEMIDE
     Route: 065
  17. PANTOPRAZOL [PANTOPRAZOLE] [Concomitant]
     Active Substance: PANTOPRAZOLE
     Route: 065

REACTIONS (20)
  - Dyspnoea [Not Recovered/Not Resolved]
  - Pneumonia [Recovering/Resolving]
  - Intervertebral disc protrusion [Not Recovered/Not Resolved]
  - Rheumatoid arthritis [Recovering/Resolving]
  - Back pain [Recovering/Resolving]
  - Musculoskeletal stiffness [Recovering/Resolving]
  - General physical health deterioration [Not Recovered/Not Resolved]
  - Nasopharyngitis [Not Recovered/Not Resolved]
  - Weight increased [Recovering/Resolving]
  - Glossodynia [Recovered/Resolved]
  - Urinary tract infection [Recovered/Resolved]
  - Arthralgia [Recovering/Resolving]
  - Blood uric acid increased [Not Recovered/Not Resolved]
  - Nausea [Recovered/Resolved]
  - Liver function test increased [Not Recovered/Not Resolved]
  - Injection site swelling [Recovered/Resolved]
  - Musculoskeletal pain [Recovering/Resolving]
  - Dizziness [Recovered/Resolved]
  - Cardiac valve disease [Unknown]
  - Paraesthesia [Not Recovered/Not Resolved]

NARRATIVE: CASE EVENT DATE: 20150513
